FAERS Safety Report 16173874 (Version 1)
Quarter: 2019Q2

REPORT INFORMATION
  Report Type: Spontaneous
  Country: DE (occurrence: DE)
  Receive Date: 20190409
  Receipt Date: 20190409
  Transmission Date: 20190711
  Serious: Yes (Hospitalization, Other)
  Sender: FDA-Public Use
  Company Number: DE-GLAXOSMITHKLINE-DE2019061475

PATIENT
  Age: 2 Year
  Sex: Male
  Weight: 11 kg

DRUGS (1)
  1. FLUTIDE MITE [Suspect]
     Active Substance: FLUTICASONE PROPIONATE
     Indication: ASTHMA
     Dosage: 50 ?G, UNK
     Route: 055

REACTIONS (7)
  - Asthma [Recovered/Resolved]
  - Treatment noncompliance [Recovered/Resolved]
  - Hypoventilation [Recovered/Resolved]
  - Tachypnoea [Recovered/Resolved]
  - Product administration error [Recovered/Resolved]
  - Productive cough [Recovered/Resolved]
  - Underdose [Recovered/Resolved]

NARRATIVE: CASE EVENT DATE: 20180728
